FAERS Safety Report 20605453 (Version 2)
Quarter: 2022Q1

REPORT INFORMATION
  Report Type: Spontaneous
  Country: US (occurrence: US)
  Receive Date: 20220317
  Receipt Date: 20220322
  Transmission Date: 20220424
  Serious: Yes (Other)
  Sender: FDA-Public Use
  Company Number: US-MLMSERVICE-20220301-3403337-1

PATIENT
  Age: 26 Year
  Sex: Male
  Weight: 36.3 kg

DRUGS (2)
  1. CARBOPLATIN [Suspect]
     Active Substance: CARBOPLATIN
     Indication: Oesophageal squamous cell carcinoma
     Dosage: AREA UNDER THE CURVE(AUC 1)
  2. PACLITAXEL [Suspect]
     Active Substance: PACLITAXEL
     Indication: Oesophageal squamous cell carcinoma

REACTIONS (6)
  - Myalgia [Recovering/Resolving]
  - Vomiting [Recovering/Resolving]
  - Infusion related reaction [Recovering/Resolving]
  - Nausea [Recovering/Resolving]
  - Stomatitis [Recovering/Resolving]
  - Off label use [Unknown]
